FAERS Safety Report 9267833 (Version 1)
Quarter: 2013Q2

REPORT INFORMATION
  Report Type: Spontaneous
  Country: US (occurrence: US)
  Receive Date: 20130502
  Receipt Date: 20130502
  Transmission Date: 20140414
  Serious: Yes (Death, Hospitalization, Other)
  Sender: FDA-Public Use
  Company Number: US-009507513-0604USA02420

PATIENT
  Sex: Female
  Weight: 77.11 kg

DRUGS (3)
  1. MK-0966 [Suspect]
     Indication: ARTHRITIS
     Dosage: 25 MG, QD
     Route: 048
     Dates: start: 20040304, end: 20040724
  2. MK-0966 [Suspect]
     Indication: SPONDYLITIS
  3. VITAMINS (UNSPECIFIED) [Concomitant]

REACTIONS (6)
  - Myocardial infarction [Unknown]
  - Diabetes mellitus [Fatal]
  - Cardiac arrest [Fatal]
  - Asthenia [Unknown]
  - Sudden cardiac death [Unknown]
  - Cardiac arrest [Fatal]
